FAERS Safety Report 7898258-X (Version None)
Quarter: 2011Q4

REPORT INFORMATION
  Report Type: 
  Country: None (occurrence: None)
  Receive Date: 20111107
  Receipt Date: 20111011
  Transmission Date: 20120403
  Serious: Yes (Hospitalization)
  Sender: FDA-Public Use
  Company Number: JP-GLAXOSMITHKLINE-B0744060A

PATIENT
  Sex: Female

DRUGS (5)
  1. LANSOPRAZOLE [Concomitant]
     Indication: GASTROINTESTINAL ULCER
     Dosage: 30MG PER DAY
     Route: 048
  2. PREDNISOLONE [Concomitant]
     Indication: IDIOPATHIC THROMBOCYTOPENIC PURPURA
     Dosage: 5MG PER DAY
     Route: 048
  3. AMLODIPINE [Concomitant]
     Indication: HYPERTENSION
     Dosage: 5MG PER DAY
     Route: 048
     Dates: start: 20091101
  4. MAGNESIUM SULFATE [Concomitant]
     Indication: CONSTIPATION
     Dosage: 990MG PER DAY
     Route: 048
  5. PROMACTA [Suspect]
     Indication: IDIOPATHIC THROMBOCYTOPENIC PURPURA
     Dosage: 25MG PER DAY
     Route: 048
     Dates: start: 20110329, end: 20110531

REACTIONS (3)
  - CEREBRAL INFARCTION [None]
  - MELAENA [None]
  - CEREBRAL ARTERY STENOSIS [None]
